FAERS Safety Report 9425156 (Version 3)
Quarter: 2013Q3

REPORT INFORMATION
  Report Type: Spontaneous
  Country: AU (occurrence: AU)
  Receive Date: 20130729
  Receipt Date: 20130909
  Transmission Date: 20140515
  Serious: Yes (Hospitalization, Other)
  Sender: FDA-Public Use
  Company Number: AU-AMGEN-AUSSP2013045488

PATIENT
  Age: 88 Year
  Sex: Male

DRUGS (3)
  1. XGEVA [Suspect]
     Indication: PROSTATE CANCER METASTATIC
     Dosage: 120 MG, Q4WK
     Route: 058
     Dates: start: 201202
  2. CALTRATE                           /00944201/ [Concomitant]
  3. VITAMIN D                          /00107901/ [Concomitant]

REACTIONS (9)
  - Back pain [Unknown]
  - Sepsis [Unknown]
  - Dementia Alzheimer^s type [Not Recovered/Not Resolved]
  - Fall [Unknown]
  - Metastases to spine [Unknown]
  - Malaise [Unknown]
  - Neck pain [Recovered/Resolved]
  - Hypoacusis [Not Recovered/Not Resolved]
  - Musculoskeletal pain [Recovered/Resolved]
